FAERS Safety Report 21729197 (Version 1)
Quarter: 2022Q4

REPORT INFORMATION
  Report Type: Spontaneous
  Country: GB (occurrence: GB)
  Receive Date: 20221214
  Receipt Date: 20221214
  Transmission Date: 20230112
  Serious: Yes (Other)
  Sender: FDA-Public Use
  Company Number: None

PATIENT
  Age: 84 Year
  Sex: Male
  Weight: 87 kg

DRUGS (19)
  1. EDOXABAN [Suspect]
     Active Substance: EDOXABAN
     Indication: Ill-defined disorder
     Dosage: UNK
     Route: 065
     Dates: start: 20221129
  2. ALENDRONIC ACID [Concomitant]
     Active Substance: ALENDRONIC ACID
     Indication: Prophylaxis
     Dosage: ONCE EVERY 1 WK (TAKE ONE WEEKLY FOR BONE PROTECTION WHILE YOU A...)
     Route: 065
     Dates: start: 20200210
  3. AMITRIPTYLINE HYDROCHLORIDE [Concomitant]
     Active Substance: AMITRIPTYLINE HYDROCHLORIDE
     Indication: Ill-defined disorder
     Dosage: UNK (START WITH ONE AT NIGHT, GRADUALLY INCREASING T...)
     Route: 065
     Dates: start: 20221114, end: 20221119
  4. AMOXICILLIN [Concomitant]
     Active Substance: AMOXICILLIN
     Indication: Upper respiratory tract infection
     Dosage: TID (TAKE ONE THREE TIMES PER DAY FOR URTIS OR BRONC...)
     Route: 065
     Dates: start: 20220914, end: 20220919
  5. BIMATOPROST [Concomitant]
     Active Substance: BIMATOPROST
     Indication: Ill-defined disorder
     Dosage: 1 DROP, QD (USE ONE DROP IN BOTH EYES ONCE A DAY OR AS DIRE...)
     Route: 047
     Dates: start: 20200210
  6. BRINZOLAMIDE [Concomitant]
     Active Substance: BRINZOLAMIDE
     Indication: Ill-defined disorder
     Dosage: 1 DROP, BID (USE ONE DROP IN BOTH EYES TWICE DAILY AS DIRECTED)
     Route: 047
     Dates: start: 20200210
  7. COCODAMOL [Concomitant]
     Active Substance: ACETAMINOPHEN\CODEINE PHOSPHATE
     Indication: Ill-defined disorder
     Dosage: UNK UNK, QID (TAKE ONE OR TWO UP TO 4 TIMES/DAY)
     Route: 065
     Dates: start: 20221028, end: 20221125
  8. DAPAGLIFLOZIN [Concomitant]
     Active Substance: DAPAGLIFLOZIN
     Indication: Ill-defined disorder
     Dosage: QD (TAKE ONE TABLET DAILY IN ADDITION TO OTHER MEDI...)
     Route: 065
     Dates: start: 20220616
  9. DEPO MEDRONE [Concomitant]
     Indication: Ill-defined disorder
     Dosage: UNK (80MG/20MG INTO RIGHT KNEE BY GP)
     Route: 065
     Dates: start: 20221020, end: 20221021
  10. DOCUSATE SODIUM [Concomitant]
     Active Substance: DOCUSATE SODIUM
     Indication: Ill-defined disorder
     Dosage: TID (TAKE ONE 3 TIMES/DAY)
     Route: 065
     Dates: start: 20221114, end: 20221119
  11. DOXYCYCLINE [Concomitant]
     Active Substance: DOXYCYCLINE
     Indication: Ill-defined disorder
     Dosage: QD (TWO TABLETS ONCE A DAY)
     Route: 065
     Dates: start: 20220830, end: 20220906
  12. EDOXABAN [Concomitant]
     Active Substance: EDOXABAN
     Indication: Anticoagulant therapy
     Dosage: QD (TAKE ONE TABLET ONCE DAILY TO THIN BLOOD. THIS ...)
     Route: 065
     Dates: start: 20220908, end: 20221111
  13. FINASTERIDE [Concomitant]
     Active Substance: FINASTERIDE
     Indication: Prostatic disorder
     Dosage: QD (TAKE ONE DAILY FOR PROSTATE SYMPTOMS. MAY TAKE ...)
     Route: 065
     Dates: start: 20200210
  14. GLICLAZIDE [Concomitant]
     Active Substance: GLICLAZIDE
     Indication: Diabetes mellitus
     Dosage: BID (TAKE ONE TWICE DAILY FOR DIABETES WHILST ON STER...)
     Route: 065
     Dates: start: 20200210
  15. POLYETHYLENE GLYCOLS [Concomitant]
     Active Substance: POLYETHYLENE GLYCOLS
     Indication: Ill-defined disorder
     Dosage: AS NEEDED (USE 1-4 SATCHETS IF NEEDED AND DOCUSATE DOES NO... )
     Route: 065
     Dates: start: 20221114, end: 20221118
  16. RAMIPRIL [Concomitant]
     Active Substance: RAMIPRIL
     Indication: Blood pressure measurement
     Dosage: QD(TAKE ONE DAILY FOR BLOOD PRESSURE)
     Route: 065
     Dates: start: 20201201
  17. RIVAROXABAN [Concomitant]
     Active Substance: RIVAROXABAN
     Indication: Anticoagulant therapy
     Dosage: QD ((TAKE ONE DAILY WITH FOOD TO THIN BLOOD))
     Route: 065
     Dates: start: 20200210
  18. TAMSULOSIN HYDROCHLORIDE [Concomitant]
     Active Substance: TAMSULOSIN HYDROCHLORIDE
     Indication: Ill-defined disorder
     Dosage: QD(TAKE ONE DAILY)
     Route: 065
     Dates: start: 20221128
  19. ACETAMINOPHEN\CODEINE PHOSPHATE [Concomitant]
     Active Substance: ACETAMINOPHEN\CODEINE PHOSPHATE
     Indication: Pain
     Dosage: AS NEEDED (1 TO 2 EVERY 4 TO 6 HOURS AS REQUIRED TO A MAX OF 8 IN 24 HOURS FOR PAIN (CO-CODAMOL30/50
     Route: 065
     Dates: start: 20221128

REACTIONS (1)
  - Diarrhoea [Recovered/Resolved]

NARRATIVE: CASE EVENT DATE: 20221129
